FAERS Safety Report 4774628-3 (Version None)
Quarter: 2005Q3

REPORT INFORMATION
  Report Type: 
  Country: None (occurrence: None)
  Receive Date: 20050914
  Receipt Date: 20041027
  Transmission Date: 20060218
  Serious: Yes (Other)
  Sender: FDA-Public Use
  Company Number: 163-20785-04100748

PATIENT
  Age: 71 Year
  Sex: Male

DRUGS (13)
  1. THALOMID [Suspect]
     Indication: MULTIPLE MYELOMA
     Dosage: 50 MG, QD, ORAL
     Route: 048
     Dates: start: 20040330, end: 20040401
  2. DEXAMETHASONE [Suspect]
     Indication: MULTIPLE MYELOMA
     Dates: start: 20040330, end: 20040401
  3. ZOCOR [Concomitant]
  4. HCTZ (HYDROCHLOROTHIAZIDE) [Concomitant]
  5. CARDIZEM [Concomitant]
  6. PROTONIX [Concomitant]
  7. DARVON [Concomitant]
  8. CELEBREX [Concomitant]
  9. LORTAB [Concomitant]
  10. MORPHINE [Concomitant]
  11. PROZAC [Concomitant]
  12. AVANDIA (ROSIGILITAZONE MALEATE) [Concomitant]
  13. INSULIN [Concomitant]

REACTIONS (1)
  - DEEP VEIN THROMBOSIS [None]
